FAERS Safety Report 25576628 (Version 3)
Quarter: 2025Q3

REPORT INFORMATION
  Report Type: Spontaneous
  Country: JP (occurrence: JP)
  Receive Date: 20250718
  Receipt Date: 20250801
  Transmission Date: 20251021
  Serious: Yes (Other)
  Sender: NOVARTIS
  Company Number: JP-002147023-NVSJ2025JP007278

PATIENT
  Age: 6 Year
  Sex: Male

DRUGS (2)
  1. TISAGENLECLEUCEL [Suspect]
     Active Substance: TISAGENLECLEUCEL
     Indication: B-cell type acute leukaemia
     Route: 065
  2. BLINATUMOMAB [Suspect]
     Active Substance: BLINATUMOMAB
     Indication: B-cell type acute leukaemia
     Route: 065

REACTIONS (3)
  - B-cell type acute leukaemia [Unknown]
  - Recurrent cancer [Unknown]
  - Drug ineffective [Unknown]
